FAERS Safety Report 6781824-2 (Version None)
Quarter: 2010Q2

REPORT INFORMATION
  Report Type: 
  Country: None (occurrence: None)
  Receive Date: 20100520
  Receipt Date: 20090731
  Transmission Date: 20101027
  Serious: Yes (Other)
  Sender: FDA-Public Use
  Company Number: 2009248947

PATIENT
  Age: 56 Year
  Sex: Female
  Weight: 61 kg

DRUGS (7)
  1. PROVERA [Suspect]
     Indication: HORMONE REPLACEMENT THERAPY
     Dosage: ORAL
     Route: 048
     Dates: start: 19990101, end: 20010101
  2. ESTROGENS () [Suspect]
     Indication: HORMONE REPLACEMENT THERAPY
     Dates: start: 19990101, end: 20010101
  3. FEMHRT [Suspect]
     Indication: HORMONE REPLACEMENT THERAPY
     Dates: start: 20010101, end: 20040401
  4. ANTIBIOTICS [Concomitant]
  5. ZYRTEC [Concomitant]
  6. NORVASC [Concomitant]
  7. DYAZIDE [Concomitant]

REACTIONS (1)
  - BREAST CANCER FEMALE [None]
